FAERS Safety Report 9327135 (Version 1)
Quarter: 2013Q2

REPORT INFORMATION
  Report Type: Spontaneous
  Country: US (occurrence: None)
  Receive Date: 20130530
  Receipt Date: 20130530
  Transmission Date: 20140414
  Serious: Yes (Hospitalization)
  Sender: FDA-Public Use
  Company Number: 1719250

PATIENT
  Age: 74 Year
  Sex: Male
  Weight: 69 kg

DRUGS (4)
  1. MORPHINE SULFATE [Suspect]
     Indication: BONE PAIN
  2. ACETAMINOPHEN W/HYDROCODONE BITARTRATE [Suspect]
     Indication: PAIN
     Dates: start: 20121213
  3. OXYCODONE [Suspect]
     Indication: PAIN IN EXTREMITY
     Dates: start: 20121031
  4. INVESTIGATIONAL DRUG [Suspect]
     Route: 042
     Dates: start: 20121129, end: 20121129

REACTIONS (13)
  - Helicobacter infection [None]
  - Asthenia [None]
  - Dysuria [None]
  - Decreased appetite [None]
  - Dysgeusia [None]
  - Dry mouth [None]
  - Rectal haemorrhage [None]
  - Gastrointestinal haemorrhage [None]
  - Blood sodium decreased [None]
  - Inappropriate antidiuretic hormone secretion [None]
  - Acute prerenal failure [None]
  - Blood pressure decreased [None]
  - Renal failure acute [None]
